FAERS Safety Report 19179086 (Version 3)
Quarter: 2021Q3

REPORT INFORMATION
  Report Type: Spontaneous
  Country: None (occurrence: US)
  Receive Date: 20210426
  Receipt Date: 20210923
  Transmission Date: 20211014
  Serious: Yes (Life-Threatening, Hospitalization, Other)
  Sender: FDA-Public Use
  Company Number: DE-SA-2021SA132116

PATIENT
  Age: 27 Year
  Sex: Female

DRUGS (1)
  1. ALEMTUZUMAB [Suspect]
     Active Substance: ALEMTUZUMAB
     Indication: RELAPSING-REMITTING MULTIPLE SCLEROSIS
     Dosage: INITIAL THERAPY
     Route: 041

REACTIONS (8)
  - Headache [Recovered/Resolved]
  - Cerebral haemorrhage [Recovered/Resolved]
  - Basal ganglia haemorrhage [Recovered/Resolved]
  - Vascular pseudoaneurysm [Recovered/Resolved]
  - Artery dissection [Recovered/Resolved]
  - Stenosis [Recovered/Resolved]
  - Hydrocephalus [Recovered/Resolved]
  - Vertebral artery dissection [Recovered/Resolved]
